FAERS Safety Report 4285427-3 (Version None)
Quarter: 2004Q1

REPORT INFORMATION
  Report Type: 
  Country: None (occurrence: None)
  Receive Date: 20040202
  Receipt Date: 20040122
  Transmission Date: 20041129
  Serious: Yes (Life-Threatening, Hospitalization)
  Sender: FDA-Public Use
  Company Number: 2003CG01617

PATIENT
  Age: 71 Year
  Sex: Male
  Weight: 70 kg

DRUGS (4)
  1. ZESTRIL [Suspect]
     Indication: CARDIAC FAILURE
     Dates: start: 20000615, end: 20030825
  2. ALDACTONE [Suspect]
     Indication: CARDIAC FAILURE
     Dates: end: 20030825
  3. FUROSEMIDE [Suspect]
     Indication: CARDIAC FAILURE
     Dates: start: 20000615, end: 20030825
  4. CORDARONE [Concomitant]

REACTIONS (14)
  - ANOREXIA [None]
  - ASTHENIA [None]
  - ATRIOVENTRICULAR BLOCK FIRST DEGREE [None]
  - BALANCE DISORDER [None]
  - BRADYCARDIA [None]
  - BUNDLE BRANCH BLOCK LEFT [None]
  - CONDITION AGGRAVATED [None]
  - ELECTROCARDIOGRAM T WAVE AMPLITUDE INCREASED [None]
  - HEAT EXPOSURE INJURY [None]
  - HYPERKALAEMIA [None]
  - METABOLIC ACIDOSIS [None]
  - NAUSEA [None]
  - RENAL FAILURE ACUTE [None]
  - VOMITING [None]
